FAERS Safety Report 10213967 (Version 1)
Quarter: 2014Q2

REPORT INFORMATION
  Report Type: Spontaneous
  Country: US (occurrence: US)
  Receive Date: 20140603
  Receipt Date: 20140603
  Transmission Date: 20141212
  Serious: Yes (Other)
  Sender: FDA-Public Use
  Company Number: US-BAYER-2014-081402

PATIENT
  Age: 41 Year
  Sex: Female
  Weight: 112.93 kg

DRUGS (2)
  1. OCELLA [Suspect]
  2. CITALOPRAM [Concomitant]
     Dosage: 40 MG, UNK
     Dates: start: 201106, end: 201301

REACTIONS (1)
  - Deep vein thrombosis [Recovered/Resolved]
